FAERS Safety Report 17168360 (Version 1)
Quarter: 2019Q4

REPORT INFORMATION
  Report Type: Spontaneous
  Country: RU (occurrence: RU)
  Receive Date: 20191218
  Receipt Date: 20191218
  Transmission Date: 20200122
  Serious: Yes (Other)
  Sender: FDA-Public Use
  Company Number: RU-GLAXOSMITHKLINE-RU2019EME218924

PATIENT

DRUGS (1)
  1. RELVAR ELLIPTA [Suspect]
     Active Substance: FLUTICASONE FUROATE\VILANTEROL TRIFENATATE
     Indication: PRODUCT USED FOR UNKNOWN INDICATION
     Dosage: UNK

REACTIONS (2)
  - Asphyxia [Recovered/Resolved]
  - Laryngospasm [Recovered/Resolved]

NARRATIVE: CASE EVENT DATE: 20191003
